FAERS Safety Report 5231062-X (Version None)
Quarter: 2007Q1

REPORT INFORMATION
  Report Type: 
  Country: None (occurrence: None)
  Receive Date: 20070206
  Receipt Date: 20070131
  Transmission Date: 20070707
  Serious: Yes (Other)
  Sender: FDA-Public Use
  Company Number: GB-GLAXOSMITHKLINE-B0390111A

PATIENT
  Sex: Female

DRUGS (3)
  1. SEROXAT [Suspect]
     Dosage: 20MG PER DAY
     Route: 065
     Dates: end: 20030201
  2. OLANZAPINE [Concomitant]
     Route: 065
  3. VALPROATE SODIUM [Concomitant]
     Dosage: 250MG THREE TIMES PER DAY
     Route: 065

REACTIONS (6)
  - ABNORMAL BEHAVIOUR [None]
  - COMPLETED SUICIDE [None]
  - DRUG WITHDRAWAL SYNDROME [None]
  - NAUSEA [None]
  - PERSONALITY CHANGE [None]
  - RESTLESSNESS [None]
